FAERS Safety Report 7958675-6 (Version None)
Quarter: 2011Q4

REPORT INFORMATION
  Report Type: 
  Country: None (occurrence: None)
  Receive Date: 20111206
  Receipt Date: 20111129
  Transmission Date: 20120403
  Serious: Yes (Other)
  Sender: FDA-Public Use
  Company Number: IN-PAR PHARMACEUTICAL, INC-2011SCPR003448

PATIENT

DRUGS (4)
  1. LOPERAMIDE HCL [Concomitant]
     Indication: DIARRHOEA
     Dosage: UNK, UNKNOWN
     Route: 065
  2. TINIDAZOLE [Suspect]
     Indication: IRRITABLE BOWEL SYNDROME
     Dosage: UNK, UNKNOWN
     Route: 065
  3. NORFLOXACIN [Concomitant]
     Indication: DIARRHOEA
     Dosage: UNK UNK, UNKNOWN
     Route: 065
  4. METRONIDAZOLE [Suspect]
     Indication: IRRITABLE BOWEL SYNDROME
     Dosage: UNK, UNKNOWN
     Route: 065

REACTIONS (5)
  - TOXIC ENCEPHALOPATHY [None]
  - AXONAL NEUROPATHY [None]
  - LEUKOPENIA [None]
  - ANAEMIA [None]
  - VASCULITIS [None]
